FAERS Safety Report 18609532 (Version 1)
Quarter: 2020Q4

REPORT INFORMATION
  Report Type: Spontaneous
  Country: NO (occurrence: NO)
  Receive Date: 20201214
  Receipt Date: 20201214
  Transmission Date: 20210114
  Serious: Yes (Hospitalization, Other)
  Sender: FDA-Public Use
  Company Number: NO-TEVA-2020-NO-1857182

PATIENT
  Age: 25 Year
  Sex: Female
  Weight: 63 kg

DRUGS (8)
  1. LIDOCAINE. [Concomitant]
     Active Substance: LIDOCAINE
  2. SOLU-CORTEF [Concomitant]
     Active Substance: HYDROCORTISONE SODIUM SUCCINATE
     Dosage: 100 MG
     Route: 030
  3. IMOVANE [Concomitant]
     Active Substance: ZOPICLONE
     Dosage: 7.5 MG
     Route: 048
  4. ZYRTEC [Concomitant]
     Active Substance: CETIRIZINE HYDROCHLORIDE
     Dosage: 10 MG
     Route: 048
  5. BENZATHINE PHENOXYMETHYL PENICILLIN [Suspect]
     Active Substance: PENICILLIN V BENZATHINE
     Indication: WISDOM TEETH REMOVAL
     Dosage: 660 MG
     Dates: start: 20190815, end: 20190825
  6. PREDNISOLON [Concomitant]
     Active Substance: PREDNISOLONE
     Dosage: 20 MG
     Route: 048
  7. BENZATHINE PHENOXYMETHYL PENICILLIN [Suspect]
     Active Substance: PENICILLIN V BENZATHINE
     Dates: start: 20190815, end: 20190825
  8. XYLOCAIN [Concomitant]
     Dosage: 2 %
     Route: 003

REACTIONS (5)
  - Erythema multiforme [Recovered/Resolved]
  - Oropharyngeal pain [Recovered/Resolved]
  - Arthralgia [Recovered/Resolved]
  - Pyrexia [Recovered/Resolved]
  - Urticaria [Recovered/Resolved]

NARRATIVE: CASE EVENT DATE: 20190826
